FAERS Safety Report 4982209-1 (Version None)
Quarter: 2006Q2

REPORT INFORMATION
  Report Type: 
  Country: None (occurrence: None)
  Receive Date: 20060419
  Receipt Date: 20060403
  Transmission Date: 20061013
  Serious: Yes (Death, Hospitalization)
  Sender: FDA-Public Use
  Company Number: US200604000518

PATIENT
  Age: 83 Year
  Sex: Female

DRUGS (2)
  1. FORTEO [Suspect]
     Indication: OSTEOPOROSIS
     Dates: start: 20050515, end: 20060316
  2. FORTEO PEN (FORTEO PEN) [Concomitant]

REACTIONS (4)
  - CONVULSION [None]
  - ENCEPHALITIS [None]
  - HERPES ZOSTER [None]
  - NERVOUS SYSTEM DISORDER [None]
